FAERS Safety Report 15411532 (Version 1)
Quarter: 2018Q3

REPORT INFORMATION
  Report Type: Spontaneous
  Country: US (occurrence: US)
  Receive Date: 20180920
  Receipt Date: 20180920
  Transmission Date: 20181010
  Serious: Yes (Other)
  Sender: FDA-Public Use
  Company Number: None

PATIENT
  Age: 79 Year
  Sex: Male
  Weight: 87.09 kg

DRUGS (19)
  1. VITAMIN D3: 1000 INTL UNITS ORALLY EVERY OTHER DAY [Concomitant]
  2. CLOPIDOGREL: 75MG ORALLY ONCE A DAY  DISCONTINUED 9/5/18 [Concomitant]
  3. INDOMETHACIN: 50 MG TAB TAKEN AS NEEDED FOR PAIN FOR GOUT [Concomitant]
  4. CO Q 10: 100MG CAP ORALLY TWICE A DAY [Concomitant]
  5. VITAMIN B1: 1400MG ORALLY ONCE A DAY SUMMER ONLY [Concomitant]
  6. DICLOFENAC POT 50 MG TAB TAKEN AS NEEDED FOR PAIN FOR GOUT [Concomitant]
  7. ISOSORBINE MN 10MG EVERY EVENING [Concomitant]
  8. LOSORTAN 50MG TAKEN EVERY MORNING [Concomitant]
  9. CAL/MAG: 500/250 MG ORALLY ONCE A DAY [Concomitant]
  10. ATENOLOL: 50MG TAB ORALLY ONCE A DAY [Concomitant]
  11. VALSARTAN TAB 80MG [Suspect]
     Active Substance: VALSARTAN
     Indication: MYOCARDIAL INFARCTION
     Dosage: ?          QUANTITY:3 BOTTLES; 90CT;?
     Route: 048
     Dates: end: 20180821
  12. CONDROITIN GLUCOSOMINE (MOVE FREE) 1500MG FOR ARTTHRITIS [Concomitant]
  13. FISH OIL: 1000MG TAB ORALLY TWICE A DAY [Concomitant]
  14. SLO?NIACIN: 250 MG ORALLY EVERY MORNINGING; EVERY OTHER EVENING [Concomitant]
  15. NITROGLYCERIN 0.2 MG/HR PAT DISCONTINUED 9/5/18 [Concomitant]
  16. DIOVAN: 80MG TAB ORALLY ONCE A DAY  (REPLACED BY LOSARTAN 50MG) [Concomitant]
  17. ASPIRIN: 80MG TAB ORALLY ONCE A DAY [Concomitant]
  18. VITAMIN C: 1000MG TAB ORALLY ONCE A DAY [Concomitant]
  19. VITAMIN B 100 COMPLEX: TAB ORALLY ONCE A DAY [Concomitant]

REACTIONS (1)
  - Product use issue [None]

NARRATIVE: CASE EVENT DATE: 20180821
